FAERS Safety Report 12473242 (Version 1)
Quarter: 2016Q2

REPORT INFORMATION
  Report Type: Spontaneous
  Country: US (occurrence: US)
  Receive Date: 20160616
  Receipt Date: 20160616
  Transmission Date: 20160815
  Serious: No
  Sender: FDA-Public Use
  Company Number: US-FRESENIUS KABI-FK201603661

PATIENT
  Age: 49 Year
  Sex: Female
  Weight: 108 kg

DRUGS (2)
  1. LACTULOSE (MANUFACTURER UNKNOWN) [Suspect]
     Active Substance: LACTULOSE
     Indication: AMMONIA INCREASED
     Route: 054
  2. TYVASO [Concomitant]
     Active Substance: TREPROSTINIL
     Dates: start: 20151205

REACTIONS (2)
  - Lactose intolerance [Unknown]
  - Off label use [Unknown]

NARRATIVE: CASE EVENT DATE: 201605
